FAERS Safety Report 9315990 (Version 2)
Quarter: 2013Q3

REPORT INFORMATION
  Report Type: Spontaneous
  Country: US (occurrence: US)
  Receive Date: 20130530
  Receipt Date: 20130819
  Transmission Date: 20140515
  Serious: Yes (Hospitalization, Other)
  Sender: FDA-Public Use
  Company Number: US-BIOGENIDEC-2013BI047962

PATIENT
  Age: 49 Year
  Sex: Female

DRUGS (2)
  1. AVONEX [Suspect]
     Indication: MULTIPLE SCLEROSIS
     Route: 030
     Dates: start: 201211
  2. AVONEX [Suspect]
     Indication: MULTIPLE SCLEROSIS
     Route: 030
     Dates: start: 20130202, end: 201303

REACTIONS (10)
  - Chest discomfort [Unknown]
  - Chest pain [Unknown]
  - Injection site hypersensitivity [Unknown]
  - Pleurisy [Recovered/Resolved]
  - Pericarditis [Recovered/Resolved]
  - Extrasystoles [Recovered/Resolved]
  - Burning sensation [Recovered/Resolved]
  - Loss of control of legs [Recovered/Resolved]
  - Muscle spasms [Recovered/Resolved]
  - Pain [Recovered/Resolved]
